APPROVED DRUG PRODUCT: OXACILLIN SODIUM
Active Ingredient: OXACILLIN SODIUM
Strength: EQ 10GM BASE/VIAL
Dosage Form/Route: INJECTABLE;INJECTION
Application: A207148 | Product #001 | TE Code: AP
Applicant: WOCKHARDT BIO AG
Approved: Nov 24, 2017 | RLD: No | RS: No | Type: RX